FAERS Safety Report 17660657 (Version 1)
Quarter: 2020Q2

REPORT INFORMATION
  Report Type: Spontaneous
  Country: US (occurrence: US)
  Receive Date: 20200413
  Receipt Date: 20200413
  Transmission Date: 20200713
  Serious: No
  Sender: FDA-Public Use
  Company Number: US-GLAXOSMITHKLINE-US2020AMR062895

PATIENT
  Sex: Female
  Weight: 86.18 kg

DRUGS (1)
  1. WELLBUTRIN [Suspect]
     Active Substance: BUPROPION HYDROCHLORIDE
     Indication: SMOKING CESSATION THERAPY
     Dosage: UNK
     Route: 065

REACTIONS (4)
  - Panic attack [Unknown]
  - Product use in unapproved indication [Unknown]
  - Depression [Unknown]
  - Drug effective for unapproved indication [Unknown]
